FAERS Safety Report 12465046 (Version 1)
Quarter: 2016Q2

REPORT INFORMATION
  Report Type: Spontaneous
  Country: JP (occurrence: JP)
  Receive Date: 20160614
  Receipt Date: 20160614
  Transmission Date: 20160815
  Serious: Yes (Death, Other)
  Sender: FDA-Public Use
  Company Number: PHJP1900JP002052

PATIENT
  Age: 43 Year
  Sex: Male

DRUGS (6)
  1. SANDIMMUN [Suspect]
     Active Substance: CYCLOSPORINE
     Dosage: 160 MG, QD
     Route: 041
     Dates: start: 19921001, end: 19921022
  2. SANDIMMUN [Suspect]
     Active Substance: CYCLOSPORINE
     Dosage: 120 MG, QD
     Route: 041
     Dates: start: 19921023, end: 19921028
  3. SANDIMMUN [Suspect]
     Active Substance: CYCLOSPORINE
     Dosage: 100 MG, QD
     Route: 041
     Dates: start: 19921029, end: 19921102
  4. SANDIMMUN [Suspect]
     Active Substance: CYCLOSPORINE
  5. SANDIMMUN [Suspect]
     Active Substance: CYCLOSPORINE
     Indication: GRAFT VERSUS HOST DISEASE
     Dosage: 200 MG, QD
     Route: 041
     Dates: start: 19920916, end: 19920930
  6. SANDIMMUN [Suspect]
     Active Substance: CYCLOSPORINE
     Dosage: 80 MG, QD
     Route: 041
     Dates: start: 19921103, end: 19921115

REACTIONS (1)
  - Azotaemia [Fatal]
